FAERS Safety Report 10252367 (Version 1)
Quarter: 2014Q2

REPORT INFORMATION
  Report Type: Spontaneous
  Country: US (occurrence: None)
  Receive Date: 20140620
  Receipt Date: 20140620
  Transmission Date: 20141212
  Serious: Yes (Hospitalization)
  Sender: FDA-Public Use
  Company Number: None

PATIENT
  Age: 69 Year
  Sex: Male
  Weight: 106.2 kg

DRUGS (2)
  1. SPIRONOLACTONE [Suspect]
     Indication: CARDIAC FAILURE CONGESTIVE
     Dosage: 1 TABLET EVERYDAY PO
     Route: 048
     Dates: start: 20090126, end: 20140404
  2. LISINOPRIL [Suspect]
     Indication: CARDIAC FAILURE CONGESTIVE
     Dosage: 1 TAB EVERYDAY PO
     Route: 048
     Dates: start: 20100713

REACTIONS (5)
  - Renal failure acute [None]
  - Electrocardiogram T wave peaked [None]
  - Gastroenteritis viral [None]
  - Hyperkalaemia [None]
  - Metabolic acidosis [None]
